FAERS Safety Report 6667120-2 (Version None)
Quarter: 2010Q2

REPORT INFORMATION
  Report Type: 
  Country: None (occurrence: None)
  Receive Date: 20100401
  Receipt Date: 20100401
  Transmission Date: 20101027
  Serious: Yes (Other)
  Sender: FDA-Public Use
  Company Number: None

PATIENT
  Age: 52 Year
  Sex: Female
  Weight: 90.9 kg

DRUGS (1)
  1. SUMATRIPTAN SUCCINATE [Suspect]
     Indication: MIGRAINE
     Dosage: 100MG AS NEEDED ORAL
     Route: 048
     Dates: start: 20091109, end: 20091119

REACTIONS (6)
  - DIZZINESS [None]
  - NAUSEA [None]
  - NO THERAPEUTIC RESPONSE [None]
  - PRODUCT CONTAMINATION [None]
  - PRODUCT COUNTERFEIT [None]
  - PRODUCT SUBSTITUTION ISSUE [None]
